FAERS Safety Report 6129933-5 (Version None)
Quarter: 2009Q1

REPORT INFORMATION
  Report Type: 
  Country: None (occurrence: None)
  Receive Date: 20090324
  Receipt Date: 20090312
  Transmission Date: 20090719
  Serious: Yes (Hospitalization)
  Sender: FDA-Public Use
  Company Number: DE-PFIZER INC-2009153841

PATIENT

DRUGS (2)
  1. LYRICA [Suspect]
     Indication: NEURALGIA
     Dosage: BETWEEN 600 MG AND 1500 MG PER DAY
     Route: 048
     Dates: start: 20060601, end: 20090309
  2. MORPHINE [Concomitant]
     Indication: NEURALGIA
     Dosage: UNK
     Route: 048
     Dates: start: 20080809

REACTIONS (2)
  - DRUG DEPENDENCE [None]
  - WITHDRAWAL SYNDROME [None]
